FAERS Safety Report 8853679 (Version 2)
Quarter: 2012Q4

REPORT INFORMATION
  Report Type: 
  Country: US (occurrence: US)
  Receive Date: 20121023
  Receipt Date: 20121212
  Transmission Date: 20130627
  Serious: Yes (Death)
  Sender: FDA-Public Use
  Company Number: US-ACTELION-A-US2012-73101

PATIENT
  Age: 57 Year
  Sex: Female

DRUGS (3)
  1. VENTAVIS [Suspect]
     Indication: PULMONARY ARTERIAL HYPERTENSION
     Dosage: 5 ?g, 6-9 x/day
     Route: 055
     Dates: start: 2010
  2. SILDENAFIL [Concomitant]
  3. ASPIRIN [Concomitant]

REACTIONS (5)
  - Renal failure acute [Fatal]
  - Hyperkalaemia [Fatal]
  - Septic shock [Fatal]
  - Pulmonary arterial hypertension [Fatal]
  - Condition aggravated [None]
